FAERS Safety Report 5675682-7 (Version None)
Quarter: 2008Q1

REPORT INFORMATION
  Report Type: 
  Country: None (occurrence: None)
  Receive Date: 20080317
  Receipt Date: 20080305
  Transmission Date: 20080703
  Serious: Yes (Death, Disabling)
  Sender: FDA-Public Use
  Company Number: 100#08#2008-01169

PATIENT
  Age: 60 Year
  Sex: Female

DRUGS (3)
  1. METHOTREXATE [Suspect]
     Indication: CENTRAL NERVOUS SYSTEM LYMPHOMA
     Dosage: 12 MG INTRATHECAL; 1 G/M2 INTRAVENOUS
     Route: 037
  2. CYTARABINE [Suspect]
     Indication: CENTRAL NERVOUS SYSTEM LYMPHOMA
     Dosage: 30 MG INTRATHECAL; 6 G/M2 INTRAVENOUS
     Route: 037
  3. HYDROCORTISONE [Suspect]
     Indication: CENTRAL NERVOUS SYSTEM LYMPHOMA
     Dosage: 50 MG INTRATHECAL
     Route: 037

REACTIONS (9)
  - ILL-DEFINED DISORDER [None]
  - MUSCULAR WEAKNESS [None]
  - MYELOPATHY [None]
  - SENSORY DISTURBANCE [None]
  - SEPSIS [None]
  - SPINAL CORD DISORDER [None]
  - THERAPEUTIC AGENT TOXICITY [None]
  - URINARY INCONTINENCE [None]
  - VIBRATION TEST ABNORMAL [None]
